FAERS Safety Report 24322077 (Version 2)
Quarter: 2024Q4

REPORT INFORMATION
  Report Type: Spontaneous
  Country: JP (occurrence: JP)
  Receive Date: 20240916
  Receipt Date: 20241109
  Transmission Date: 20250114
  Serious: Yes (Hospitalization)
  Sender: ROCHE
  Company Number: JP-CHUGAI-2024031599

PATIENT
  Age: 13 Year
  Sex: Male

DRUGS (1)
  1. HEMLIBRA [Suspect]
     Active Substance: EMICIZUMAB-KXWH
     Indication: Haemophilia A without inhibitors
     Dosage: UNK
     Route: 050

REACTIONS (1)
  - Fracture [Recovering/Resolving]

NARRATIVE: CASE EVENT DATE: 20240801
